FAERS Safety Report 7794074-8 (Version None)
Quarter: 2011Q4

REPORT INFORMATION
  Report Type: 
  Country: None (occurrence: None)
  Receive Date: 20111004
  Receipt Date: 20110923
  Transmission Date: 20120403
  Serious: Yes (Hospitalization)
  Sender: FDA-Public Use
  Company Number: CA-JNJFOC-20110800465

PATIENT
  Sex: Male
  Weight: 90 kg

DRUGS (9)
  1. CELEBREX [Concomitant]
  2. PREDNISONE [Concomitant]
  3. REMICADE [Suspect]
     Indication: CROHN'S DISEASE
     Route: 042
     Dates: start: 20110607, end: 20110607
  4. BISMUTH [Concomitant]
  5. IMURAN [Concomitant]
  6. FLOMAX [Concomitant]
  7. VITAMIN TAB [Concomitant]
  8. CALCIUM CARBONATE [Concomitant]
  9. ACTONEL [Concomitant]

REACTIONS (1)
  - RENAL COLIC [None]
